FAERS Safety Report 5583307-4 (Version None)
Quarter: 2007Q4

REPORT INFORMATION
  Report Type: 
  Country: None (occurrence: None)
  Receive Date: 20071130
  Receipt Date: 20061227
  Transmission Date: 20080405
  Serious: Yes (Other)
  Sender: FDA-Public Use
  Company Number: WAES 0612USA04043

PATIENT
  Age: 65 Year
  Sex: Female

DRUGS (7)
  1. FOSAMAX [Suspect]
     Indication: OSTEOPOROSIS
     Dosage: 70 MG/WKY/PO
     Route: 048
     Dates: start: 20000101, end: 20050309
  2. CENTRUM SILVER [Concomitant]
  3. PNEUMOVAX (PNEUMOCOCCAL 14V POLY10/??/2004 [Concomitant]
  4. ZETIA [Concomitant]
  5. ASPIRIN [Concomitant]
  6. CALCIUM CITRATE [Concomitant]
  7. INFLUENZA VIRUS VACCINE [Concomitant]

REACTIONS (3)
  - FLAT ANTERIOR CHAMBER OF EYE [None]
  - JOINT SWELLING [None]
  - OSTEONECROSIS [None]
